FAERS Safety Report 25753172 (Version 2)
Quarter: 2025Q3

REPORT INFORMATION
  Report Type: Report from Study
  Country: US (occurrence: US)
  Receive Date: 20250902
  Receipt Date: 20250927
  Transmission Date: 20251021
  Serious: Yes (Other)
  Sender: ABBVIE
  Company Number: US-ABBVIE-6440801

PATIENT
  Age: 69 Year
  Sex: Female

DRUGS (3)
  1. RINVOQ [Suspect]
     Active Substance: UPADACITINIB
     Indication: Rheumatoid arthritis
     Route: 048
     Dates: start: 20201019, end: 202507
  2. RINVOQ [Suspect]
     Active Substance: UPADACITINIB
     Indication: Rheumatoid arthritis
     Route: 048
     Dates: start: 20250904
  3. PREDNISONE [Concomitant]
     Active Substance: PREDNISONE
     Indication: Product used for unknown indication
     Dates: start: 20250904

REACTIONS (9)
  - Knee arthroplasty [Recovering/Resolving]
  - Joint noise [Unknown]
  - Musculoskeletal disorder [Unknown]
  - Fall [Recovering/Resolving]
  - Arthralgia [Recovering/Resolving]
  - Groin pain [Recovering/Resolving]
  - Neck pain [Recovering/Resolving]
  - Rheumatoid arthritis [Recovering/Resolving]
  - Pain in extremity [Unknown]

NARRATIVE: CASE EVENT DATE: 20250101
